FAERS Safety Report 9827472 (Version 3)
Quarter: 2014Q2

REPORT INFORMATION
  Report Type: Spontaneous
  Country: DE (occurrence: DE)
  Receive Date: 20140117
  Receipt Date: 20140624
  Transmission Date: 20141212
  Serious: Yes (Hospitalization, Disabling)
  Sender: FDA-Public Use
  Company Number: DE-B.I. PHARMACEUTICALS,INC./RIDGEFIELD-2013-BI-43071DE

PATIENT
  Age: 78 Year
  Sex: Female
  Weight: 74 kg

DRUGS (6)
  1. PRADAXA [Suspect]
     Indication: ATRIAL FIBRILLATION
     Dosage: 220 MG
     Route: 065
     Dates: start: 201303
  2. PRADAXA [Suspect]
     Indication: ARRHYTHMIA
  3. BISPROLOL [Concomitant]
     Indication: ARRHYTHMIA
     Dosage: ONE AND A HALF TABLET
     Route: 065
     Dates: start: 201303
  4. RAMIPRIL [Concomitant]
     Indication: HYPERTENSION
     Dosage: 2 AND A HALF
     Route: 065
     Dates: start: 201303
  5. TRAMADOL [Concomitant]
     Indication: SPINAL PAIN
     Dosage: 50 MG  UP TO 100 MG
     Route: 065
  6. TRAMADOL [Concomitant]
     Indication: CAUDA EQUINA SYNDROME

REACTIONS (11)
  - Gait disturbance [Recovered/Resolved with Sequelae]
  - Pain in extremity [Recovered/Resolved with Sequelae]
  - Muscle disorder [Recovered/Resolved with Sequelae]
  - Thrombosis [Recovered/Resolved with Sequelae]
  - Thrombophlebitis [Unknown]
  - Renal failure [Recovered/Resolved with Sequelae]
  - Renal impairment [Unknown]
  - Hepatic enzyme increased [Unknown]
  - Blood creatinine increased [Unknown]
  - Alopecia [Unknown]
  - Muscle spasms [Unknown]
